FAERS Safety Report 4294736-3 (Version None)
Quarter: 2004Q1

REPORT INFORMATION
  Report Type: 
  Country: None (occurrence: None)
  Receive Date: 20040213
  Receipt Date: 20040206
  Transmission Date: 20041129
  Serious: Yes (Hospitalization)
  Sender: FDA-Public Use
  Company Number: US-BRISTOL-MYERS SQUIBB COMPANY-12497772

PATIENT
  Age: 69 Year
  Sex: Male
  Weight: 110 kg

DRUGS (18)
  1. COUMADIN [Suspect]
     Route: 048
     Dates: end: 20030809
  2. BLINDED: NATEGLINIDE [Suspect]
     Indication: GLUCOSE TOLERANCE IMPAIRED
     Route: 048
     Dates: start: 20020410
  3. BLINDED: VALSARTAN [Suspect]
     Indication: CARDIOVASCULAR DISORDER
     Route: 048
     Dates: start: 20020410
  4. ISORDIL [Concomitant]
  5. TOPROL-XL [Concomitant]
  6. XENICAL [Concomitant]
  7. ALPRAZOLAM [Concomitant]
  8. NEXIUM [Concomitant]
  9. NITROLINGUAL [Concomitant]
  10. ADVICOR [Concomitant]
  11. HYDROCODONE [Concomitant]
  12. MONOPRIL-HCT [Concomitant]
  13. LASIX [Concomitant]
  14. AMITRIPTYLINE [Concomitant]
  15. POTASSIUM CHLORIDE [Concomitant]
  16. KENALOG [Concomitant]
  17. KLOTRIX [Concomitant]
  18. NEURONTIN [Concomitant]

REACTIONS (6)
  - CONFUSIONAL STATE [None]
  - HAEMORRHAGE [None]
  - HYPOKALAEMIA [None]
  - INTERNATIONAL NORMALISED RATIO INCREASED [None]
  - MEDICATION ERROR [None]
  - PROTHROMBIN TIME PROLONGED [None]
